FAERS Safety Report 14094608 (Version 2)
Quarter: 2017Q4

REPORT INFORMATION
  Report Type: Report from Study
  Country: US (occurrence: US)
  Receive Date: 20171016
  Receipt Date: 20171211
  Transmission Date: 20180321
  Serious: Yes (Other)
  Sender: FDA-Public Use
  Company Number: US-ALLERGAN-1752865US

PATIENT
  Age: 67 Year
  Sex: Male
  Weight: 83.45 kg

DRUGS (3)
  1. ASPIRIN. [Concomitant]
     Active Substance: ASPIRIN
     Dosage: 81 MG, QD
     Route: 048
  2. BRIMONIDINE [Suspect]
     Active Substance: BRIMONIDINE TARTRATE
     Indication: INTRAOCULAR PRESSURE INCREASED
     Dosage: UNK, BID
     Route: 047
     Dates: start: 2014
  3. PREDNISOLONE 10MG/ML SUS (6294X) [Suspect]
     Active Substance: PREDNISOLONE
     Indication: MACULAR OEDEMA
     Dosage: 2 GTT, QID
     Route: 047
     Dates: start: 2014

REACTIONS (9)
  - Inappropriate schedule of drug administration [Unknown]
  - Ocular hyperaemia [Not Recovered/Not Resolved]
  - Intraocular pressure increased [Recovered/Resolved]
  - Dry eye [Not Recovered/Not Resolved]
  - Inappropriate schedule of drug administration [Unknown]
  - Product lot number issue [Unknown]
  - Eye irritation [Not Recovered/Not Resolved]
  - Drug dose omission [Unknown]
  - Eye pain [Not Recovered/Not Resolved]

NARRATIVE: CASE EVENT DATE: 2017
